FAERS Safety Report 7917454-6 (Version None)
Quarter: 2011Q4

REPORT INFORMATION
  Report Type: 
  Country: None (occurrence: None)
  Receive Date: 20111116
  Receipt Date: 20111114
  Transmission Date: 20120403
  Serious: No
  Sender: FDA-Public Use
  Company Number: PHEH2011US009341

PATIENT
  Age: 77 Year
  Sex: Male

DRUGS (6)
  1. LIPITOR [Concomitant]
     Dosage: UNK UKN, UNK
  2. PILL FOR MY STOMACH [Concomitant]
     Dosage: UNK UKN, UNK
  3. ATENOLOL [Concomitant]
     Dosage: UNK UKN, UNK
  4. TASIGNA [Suspect]
     Dosage: UNK UKN, UNK
  5. MIRALAX [Concomitant]
     Dosage: UNK UKN, UNK
  6. ASPIRIN [Concomitant]
     Dosage: UNK UKN, UNK

REACTIONS (2)
  - ABDOMINAL PAIN UPPER [None]
  - COUGH [None]
